FAERS Safety Report 25078317 (Version 1)
Quarter: 2025Q1

REPORT INFORMATION
  Report Type: Spontaneous
  Country: US (occurrence: None)
  Receive Date: 20250313
  Receipt Date: 20250313
  Transmission Date: 20250409
  Serious: Yes (Death)
  Sender: FDA-CTU
  Company Number: None

PATIENT
  Age: 81 Year
  Sex: Male

DRUGS (21)
  1. PIRFENIDONE [Suspect]
     Active Substance: PIRFENIDONE
     Indication: Idiopathic pulmonary fibrosis
     Dosage: FREQUENCY : TWICE A DAY;?
     Route: 048
     Dates: start: 20161028, end: 20250212
  2. MORPHINE [Concomitant]
     Active Substance: MORPHINE
  3. MELATONIN [Concomitant]
     Active Substance: MELATONIN
  4. TRAZODONE [Concomitant]
     Active Substance: TRAZODONE HYDROCHLORIDE
  5. DEXTROMETHORPHAN [Concomitant]
     Active Substance: DEXTROMETHORPHAN
  6. FLONASE [Concomitant]
     Active Substance: FLUTICASONE PROPIONATE
  7. FUROSEMIDE [Concomitant]
     Active Substance: FUROSEMIDE
  8. LORATADINE [Concomitant]
     Active Substance: LORATADINE
  9. MUCINEX [Concomitant]
     Active Substance: GUAIFENESIN
  10. FLOMAX [Concomitant]
     Active Substance: TAMSULOSIN HYDROCHLORIDE
  11. ALBUTEROL [Concomitant]
     Active Substance: ALBUTEROL
  12. LORAZEPAM [Concomitant]
     Active Substance: LORAZEPAM
  13. PHENOBARBITAL [Concomitant]
     Active Substance: PHENOBARBITAL
  14. TYLENOL [Concomitant]
     Active Substance: ACETAMINOPHEN
  15. BISACODYL REC SUPP [Concomitant]
  16. SURGILUBE [Concomitant]
  17. ATROPINE OPHT DROP [Concomitant]
  18. HALDOL [Concomitant]
     Active Substance: HALOPERIDOL
  19. SENNA [Concomitant]
     Active Substance: SENNOSIDES
  20. NARCAN [Concomitant]
     Active Substance: NALOXONE HYDROCHLORIDE
  21. ALVESCO HFA [Concomitant]

REACTIONS (1)
  - Hospice care [None]

NARRATIVE: CASE EVENT DATE: 20250212
